FAERS Safety Report 5418279-6 (Version None)
Quarter: 2007Q3

REPORT INFORMATION
  Report Type: 
  Country: None (occurrence: None)
  Receive Date: 20070817
  Receipt Date: 20070814
  Transmission Date: 20080115
  Serious: Yes (Other)
  Sender: FDA-Public Use
  Company Number: B0483538A

PATIENT
  Age: 2 Year
  Sex: Male

DRUGS (2)
  1. BECLOMETHASONE DIPROPIONATE [Suspect]
     Indication: ASTHMA
     Dosage: 50MCG SEE DOSAGE TEXT
     Route: 055
     Dates: start: 20070620, end: 20070725
  2. NO CONCURRENT MEDICATION [Concomitant]

REACTIONS (1)
  - RHINALGIA [None]
